FAERS Safety Report 6961389-2 (Version None)
Quarter: 2010Q3

REPORT INFORMATION
  Report Type: 
  Country: None (occurrence: None)
  Receive Date: 20100901
  Receipt Date: 20100819
  Transmission Date: 20110219
  Serious: Yes (Other)
  Sender: FDA-Public Use
  Company Number: PHEH2006US06373

PATIENT
  Sex: Female

DRUGS (37)
  1. ELIDEL [Suspect]
     Indication: VITILIGO
     Dosage: DAILY AT MORNING
     Route: 061
     Dates: start: 20030101, end: 20031101
  2. PROTOPIC [Suspect]
     Indication: VITILIGO
     Dosage: DAILY AT NIGHT
     Route: 061
     Dates: start: 20030101, end: 20031101
  3. ACTONEL [Concomitant]
  4. ASPIRIN [Concomitant]
  5. IRON [Concomitant]
  6. LETROZOLE [Concomitant]
  7. VICODIN [Concomitant]
  8. CLINDAMYCIN [Concomitant]
  9. RANITIDINE [Concomitant]
  10. ACETAMINOPHEN AND HYDROCODONE BITARTRATE [Concomitant]
  11. LOVENOX [Concomitant]
  12. DECADRON [Concomitant]
  13. PEPCID [Concomitant]
  14. METOCLOPRAMIDE [Concomitant]
  15. MULTIVITAMIN ^LAPPE^ [Concomitant]
  16. TAZORAC [Concomitant]
  17. DOXORUBICIN HCL [Concomitant]
  18. CYCLOPHOSPHAMIDE [Concomitant]
  19. NEULASTA [Concomitant]
  20. ADRIAMYCIN PFS [Concomitant]
  21. CYTOXAN [Concomitant]
  22. TAXOL [Concomitant]
  23. HERCEPTIN [Suspect]
  24. ZOFRAN [Concomitant]
  25. BENADRYL ^ACHE^ [Concomitant]
  26. ATIVAN [Concomitant]
  27. PROCRIT                            /00909301/ [Concomitant]
  28. LEUKINE [Concomitant]
  29. KYTRIL [Concomitant]
  30. ALOXI [Concomitant]
  31. ARANESP [Concomitant]
  32. DOXYCYCLINE [Concomitant]
  33. KENALOG [Concomitant]
  34. CALCIUM [Concomitant]
  35. NEUPOGEN [Concomitant]
  36. EPOGEN [Concomitant]
  37. NEXIUM [Concomitant]
     Dosage: 40 MG

REACTIONS (65)
  - ABSCESS [None]
  - ACNE [None]
  - ADENOCARCINOMA [None]
  - ALOPECIA [None]
  - AMENORRHOEA [None]
  - ANAEMIA [None]
  - BIOPSY BREAST ABNORMAL [None]
  - BIOPSY LYMPH GLAND [None]
  - BREAST CANCER FEMALE [None]
  - BREAST CANCER IN SITU [None]
  - BREAST DISCHARGE [None]
  - BREAST MASS [None]
  - BREAST PROSTHESIS REMOVAL [None]
  - BREAST RECONSTRUCTION [None]
  - BREAST TENDERNESS [None]
  - CENTRAL VENOUS CATHETER REMOVAL [None]
  - CENTRAL VENOUS CATHETERISATION [None]
  - CHLOASMA [None]
  - CONJUNCTIVITIS [None]
  - DERMOID CYST [None]
  - DYSURIA [None]
  - EPHELIDES [None]
  - ERYTHEMA [None]
  - ERYTHEMA OF EYELID [None]
  - EXOSTOSIS [None]
  - EYE DISCHARGE [None]
  - EYE SWELLING [None]
  - EYELID OEDEMA [None]
  - HAEMATURIA [None]
  - HAEMORRHOIDS [None]
  - HEPATIC LESION [None]
  - HYPERKERATOSIS [None]
  - HYPERSENSITIVITY [None]
  - INTERVERTEBRAL DISC PROTRUSION [None]
  - IRRITABILITY [None]
  - JOINT SPRAIN [None]
  - JOINT STIFFNESS [None]
  - LIPODYSTROPHY ACQUIRED [None]
  - LIPOMA [None]
  - LYMPHADENECTOMY [None]
  - MAMMOPLASTY [None]
  - MASS EXCISION [None]
  - MASTECTOMY [None]
  - MELANOCYTIC NAEVUS [None]
  - MENOPAUSE [None]
  - METASTATIC NEOPLASM [None]
  - MOOD SWINGS [None]
  - NASOPHARYNGITIS [None]
  - NECK PAIN [None]
  - OSTEOARTHRITIS [None]
  - OSTEOPENIA [None]
  - OVARIAN CYST [None]
  - PAIN [None]
  - POLLAKIURIA [None]
  - RASH [None]
  - RASH GENERALISED [None]
  - SCAR [None]
  - SKIN DISCOLOURATION [None]
  - SKIN HYPERPIGMENTATION [None]
  - SKIN PAPILLOMA [None]
  - TOOTHACHE [None]
  - URINE ANALYSIS ABNORMAL [None]
  - VAGINAL HAEMORRHAGE [None]
  - VULVOVAGINAL DRYNESS [None]
  - WEIGHT INCREASED [None]
